FAERS Safety Report 9344161 (Version 1)
Quarter: 2013Q2

REPORT INFORMATION
  Report Type: Spontaneous
  Country: JP (occurrence: JP)
  Receive Date: 20130612
  Receipt Date: 20130612
  Transmission Date: 20140414
  Serious: Yes (Other)
  Sender: FDA-Public Use
  Company Number: JP-UCBSA-088237

PATIENT
  Age: 27 Year
  Sex: Male

DRUGS (3)
  1. E KEPPRA [Suspect]
     Indication: EPILEPSY
     Route: 048
  2. CARBAMAZEPINE [Concomitant]
     Dosage: UNKNOWN DOSE
     Route: 048
  3. SODIUM VALPROATE [Concomitant]
     Dosage: UNKNOWN DOSE
     Route: 048

REACTIONS (1)
  - Loss of consciousness [Recovered/Resolved]
